FAERS Safety Report 16688537 (Version 1)
Quarter: 2019Q3

REPORT INFORMATION
  Report Type: Spontaneous
  Country: US (occurrence: US)
  Receive Date: 20190809
  Receipt Date: 20190809
  Transmission Date: 20191004
  Serious: No
  Sender: FDA-Public Use
  Company Number: US-PURDUE-USA-2019-0146116

PATIENT
  Age: 67 Year
  Sex: Male
  Weight: 79.37 kg

DRUGS (1)
  1. BUPRENORPHINE TRANSDERMAL PATCH (SIMILAR TO NDA 21-306) [Suspect]
     Active Substance: BUPRENORPHINE
     Indication: BACK PAIN
     Dosage: 15 MCG/HR, WEEKLY
     Route: 062
     Dates: start: 20130415

REACTIONS (4)
  - Unevaluable event [Recovered/Resolved]
  - Product adhesion issue [Not Recovered/Not Resolved]
  - Skin irritation [Recovered/Resolved]
  - Rash [Recovered/Resolved]

NARRATIVE: CASE EVENT DATE: 20190201
